FAERS Safety Report 5021518-7 (Version None)
Quarter: 2006Q2

REPORT INFORMATION
  Report Type: 
  Country: None (occurrence: None)
  Receive Date: 20060608
  Receipt Date: 20060605
  Transmission Date: 20061013
  Serious: Yes (Other)
  Sender: FDA-Public Use
  Company Number: US-BOEHRINGER INGELHEIM PHARMACEUTICALS, INC.-2006-BP-06361BP

PATIENT
  Sex: Female

DRUGS (3)
  1. AGGRENOX [Suspect]
  2. ALTACE [Concomitant]
     Route: 048
  3. ISOSORBIDE [Concomitant]
     Route: 048

REACTIONS (2)
  - CARDIAC FAILURE CONGESTIVE [None]
  - RENAL FAILURE [None]
